FAERS Safety Report 9882077 (Version 1)
Quarter: 2014Q1

REPORT INFORMATION
  Report Type: Spontaneous
  Country: US (occurrence: None)
  Receive Date: 20140205
  Receipt Date: 20140205
  Transmission Date: 20141002
  Serious: Yes (Death)
  Sender: FDA-Public Use
  Company Number: IMP_07444_2014

PATIENT
  Age: 26 Year
  Sex: Female

DRUGS (2)
  1. ALPRAZOLAM [Suspect]
     Indication: PRODUCT USED FOR UNKNOWN INDICATION
     Dosage: DF NOT PRESCRIBED DOSE, ORAL (UNKNOWN UNTIL NOT CONTINUING)?
     Route: 048
  2. ASPIRIN [Suspect]
     Indication: PRODUCT USED FOR UNKNOWN INDICATION
     Dosage: DF (NOT THE PRESCRIBED DOSE) ORAL (UNKNOWN UNTIL NOT CONTINUING)?
     Route: 048

REACTIONS (19)
  - Exposure via ingestion [None]
  - Completed suicide [None]
  - Mental status changes [None]
  - Agitation [None]
  - Pulmonary congestion [None]
  - Blood pressure systolic increased [None]
  - Pupil fixed [None]
  - Exposure during pregnancy [None]
  - Heart rate increased [None]
  - Blood pH decreased [None]
  - PCO2 increased [None]
  - Blood sodium increased [None]
  - Blood chloride increased [None]
  - Blood urea increased [None]
  - Blood glucose increased [None]
  - White blood cell count increased [None]
  - Dialysis [None]
  - Hypotension [None]
  - Toxicity to various agents [None]
